FAERS Safety Report 9335009 (Version 1)
Quarter: 2013Q2

REPORT INFORMATION
  Report Type: Spontaneous
  Country: NL (occurrence: NL)
  Receive Date: 20130606
  Receipt Date: 20130606
  Transmission Date: 20140414
  Serious: Yes (Other)
  Sender: FDA-Public Use
  Company Number: NL-TEVA-408134ISR

PATIENT
  Age: 57 Year
  Sex: Female

DRUGS (1)
  1. PACLITAXEL INFOPL CONC 6MG/ML [Suspect]
     Indication: BREAST CANCER
     Dosage: 1 KEER PER WEEK 1 STUK(S)
     Route: 042
     Dates: start: 20130211

REACTIONS (4)
  - Rash [Unknown]
  - Dyspnoea [Unknown]
  - Oxygen saturation decreased [Unknown]
  - Eye movement disorder [Unknown]
